FAERS Safety Report 8795296 (Version 4)
Quarter: 2013Q2

REPORT INFORMATION
  Report Type: Report from Study
  Country: JP (occurrence: JP)
  Receive Date: 20120917
  Receipt Date: 20130611
  Transmission Date: 20140414
  Serious: Yes (Hospitalization)
  Sender: FDA-Public Use
  Company Number: JP-VERTEX PHARMACEUTICAL INC.-AE-2012-009050

PATIENT
  Age: 58 Year
  Sex: Female

DRUGS (14)
  1. VX-950 (TELAPREVIR) [Suspect]
     Indication: CHRONIC HEPATITIS C
     Dosage: 1500 MG, QD
     Route: 048
     Dates: start: 20120315
  2. RIBAVIRIN [Suspect]
     Indication: CHRONIC HEPATITIS C
     Dosage: 600 MG, QD
     Route: 048
     Dates: start: 20120315, end: 20120328
  3. RIBAVIRIN [Suspect]
     Dosage: 400 MG, QD
     Route: 048
     Dates: start: 20120329, end: 20120404
  4. RIBAVIRIN [Suspect]
     Dosage: 200 MG, QD
     Route: 048
     Dates: start: 20120405, end: 20120530
  5. RIBAVIRIN [Suspect]
     Dosage: 400 MG, QD
     Route: 048
     Dates: start: 20120531, end: 20120705
  6. RIBAVIRIN [Suspect]
     Dosage: 600 MG, QD
     Route: 048
     Dates: start: 20120713, end: 20120830
  7. PEGINTERFERON ALFA-2B [Concomitant]
     Dosage: 1.5 ?G/KG, WEEKLY
     Route: 058
     Dates: start: 20120315, end: 20120628
  8. PEGINTERFERON ALFA-2B [Concomitant]
     Dosage: 1.5 ?G/KG, WEEKLY
     Route: 058
     Dates: start: 20120713, end: 20120830
  9. NAIXAN [Concomitant]
     Dosage: 200 MG, QD
     Route: 048
     Dates: start: 20120614, end: 20120726
  10. PL [Concomitant]
     Dosage: 3 G, QD
     Route: 048
     Dates: start: 20120628, end: 20120702
  11. PROMAC [Concomitant]
     Dosage: 150 MG, QD
     Route: 048
     Dates: start: 20120412
  12. PARIET [Concomitant]
     Dosage: 10 MG, QD
     Route: 048
  13. SEDEKOPAN [Concomitant]
     Dosage: 1 MG, QD
     Route: 048
  14. GASMOTIN [Concomitant]
     Dosage: 15 MG, QD
     Route: 048
     Dates: end: 20120725

REACTIONS (2)
  - Pneumonia [Recovered/Resolved]
  - Anaemia [Recovered/Resolved]
